FAERS Safety Report 18472456 (Version 3)
Quarter: 2021Q1

REPORT INFORMATION
  Report Type: Spontaneous
  Country: US (occurrence: US)
  Receive Date: 20201106
  Receipt Date: 20210316
  Transmission Date: 20210419
  Serious: Yes (Other)
  Sender: FDA-Public Use
  Company Number: US-JNJFOC-20201043141

PATIENT
  Age: 25 Year
  Sex: Male

DRUGS (1)
  1. DURAGESIC [Suspect]
     Active Substance: FENTANYL
     Indication: PAIN
     Dosage: 75? 100 MICROGRAM EVERY TWO DAYS; 15 PATCHES A MONTH
     Route: 062
     Dates: start: 20010921, end: 2008

REACTIONS (5)
  - Connective tissue disorder [Not Recovered/Not Resolved]
  - Intervertebral disc disorder [Unknown]
  - Gene mutation [Unknown]
  - Intervertebral disc protrusion [Unknown]
  - Therapeutic product effect decreased [Unknown]

NARRATIVE: CASE EVENT DATE: 20020921
